FAERS Safety Report 16406308 (Version 2)
Quarter: 2019Q2

REPORT INFORMATION
  Report Type: Report from Study
  Country: DE (occurrence: DE)
  Receive Date: 20190607
  Receipt Date: 20190617
  Transmission Date: 20190711
  Serious: Yes (Hospitalization, Other)
  Sender: FDA-Public Use
  Company Number: DE-MYLANLABS-2019M1052967

PATIENT
  Age: 2 Year
  Sex: Female
  Weight: 13 kg

DRUGS (8)
  1. GLIVEC [Suspect]
     Active Substance: IMATINIB MESYLATE
     Indication: ACUTE LYMPHOCYTIC LEUKAEMIA
     Dosage: 300MG/DAY
     Route: 048
     Dates: start: 20020516, end: 20030419
  2. METHOTREXATE. [Suspect]
     Active Substance: METHOTREXATE
     Dosage: 5 GRAM PER SQUARE METRE
     Route: 042
     Dates: start: 20020725, end: 20020725
  3. METHOTREXATE. [Suspect]
     Active Substance: METHOTREXATE
     Dosage: 5 MILLIGRAM, QD
     Route: 042
     Dates: start: 20020812, end: 20020812
  4. METHOTREXATE. [Suspect]
     Active Substance: METHOTREXATE
     Indication: ACUTE LYMPHOCYTIC LEUKAEMIA
     Dosage: 20 MILLIGRAM/SQ. METER, QW (20MG/M? PER WEEK)
     Route: 048
     Dates: start: 200303, end: 20030419
  5. METHOTREXATE. [Suspect]
     Active Substance: METHOTREXATE
     Dosage: 5 MILLIGRAM
     Route: 042
     Dates: start: 20020725
  6. METHOTREXATE. [Suspect]
     Active Substance: METHOTREXATE
     Dosage: UNK (12 X 8MG)
     Route: 037
     Dates: end: 20030224
  7. METHOTREXATE. [Suspect]
     Active Substance: METHOTREXATE
     Dosage: 20 MILLIGRAM, QW
     Route: 048
     Dates: start: 200303, end: 20030419
  8. METHOTREXATE. [Suspect]
     Active Substance: METHOTREXATE
     Indication: ACUTE LYMPHOCYTIC LEUKAEMIA
     Dosage: 5 GRAM PER SQUARE METRE
     Route: 042
     Dates: start: 20020812, end: 20020812

REACTIONS (8)
  - Abnormal behaviour [Recovering/Resolving]
  - Encephalopathy [Recovering/Resolving]
  - Nuclear magnetic resonance imaging brain abnormal [Unknown]
  - Gastroenteritis [Recovered/Resolved]
  - Gait disturbance [Recovering/Resolving]
  - Mental impairment [Recovering/Resolving]
  - Nervous system disorder [Recovering/Resolving]
  - Motor dysfunction [Recovering/Resolving]

NARRATIVE: CASE EVENT DATE: 200304
